FAERS Safety Report 7201569-4 (Version None)
Quarter: 2010Q4

REPORT INFORMATION
  Report Type: 
  Country: None (occurrence: None)
  Receive Date: 20101216
  Receipt Date: 20101209
  Transmission Date: 20110411
  Serious: Yes (Other)
  Sender: FDA-Public Use
  Company Number: SP03344

PATIENT
  Age: 26 Year
  Sex: Female

DRUGS (1)
  1. OSMOPREP [Suspect]
     Indication: BOWEL PREPARATION
     Dosage: ORAL
     Route: 048
     Dates: start: 20101120, end: 20101121

REACTIONS (5)
  - COUGH [None]
  - ERYTHEMA [None]
  - FACE OEDEMA [None]
  - PRURITUS GENERALISED [None]
  - RHINORRHOEA [None]
